FAERS Safety Report 7347831-6 (Version None)
Quarter: 2011Q1

REPORT INFORMATION
  Report Type: 
  Country: None (occurrence: None)
  Receive Date: 20110311
  Receipt Date: 20110303
  Transmission Date: 20110831
  Serious: Yes (Disabling)
  Sender: FDA-Public Use
  Company Number: GB-MERCK-1103GBR00024

PATIENT
  Age: 72 Year
  Sex: Male
  Weight: 92 kg

DRUGS (9)
  1. FELODIPINE [Suspect]
     Route: 048
     Dates: start: 20101219, end: 20110201
  2. PROSCAR [Suspect]
     Indication: PROSTATIC DISORDER
     Route: 048
  3. LISINOPRIL [Concomitant]
     Route: 048
  4. AMLODIPINE [Suspect]
     Indication: HYPERTENSION
     Route: 048
  5. LISINOPRIL [Concomitant]
     Indication: HYPERTENSION
     Route: 048
  6. ASPIRIN [Concomitant]
     Route: 065
  7. BISOPROLOL [Concomitant]
     Indication: HYPERTENSION
     Route: 048
  8. ALFUZOSIN HYDROCHLORIDE [Concomitant]
     Indication: PROSTATIC DISORDER
     Route: 048
  9. ATORVASTATIN [Concomitant]
     Indication: HYPERCHOLESTEROLAEMIA
     Route: 048

REACTIONS (7)
  - ARTHRALGIA [None]
  - DRUG PRESCRIBING ERROR [None]
  - RED BLOOD CELL COUNT DECREASED [None]
  - WRONG DRUG ADMINISTERED [None]
  - HAEMOGLOBIN DECREASED [None]
  - MYALGIA [None]
  - LYMPHOCYTE COUNT DECREASED [None]
